FAERS Safety Report 22386972 (Version 1)
Quarter: 2023Q2

REPORT INFORMATION
  Report Type: Spontaneous
  Country: CN (occurrence: None)
  Receive Date: 20230531
  Receipt Date: 20230531
  Transmission Date: 20230722
  Serious: Yes (Hospitalization)
  Sender: FDA-Public Use
  Company Number: CN-ROCHE-3357392

PATIENT
  Age: 56 Year
  Sex: Female
  Weight: 50 kg

DRUGS (4)
  1. DOCETAXEL [Suspect]
     Active Substance: DOCETAXEL
     Indication: Invasive ductal breast carcinoma
     Dosage: 18 FEB 2023 AND 11 MAR 2023, AND COMPLETED THE ADJUVANT CHEMOTHERAPY OF 3 CYCLES.
     Route: 041
     Dates: start: 20230128, end: 20230311
  2. PERJETA [Suspect]
     Active Substance: PERTUZUMAB
     Indication: Invasive ductal breast carcinoma
     Dosage: 18 FEB 2023 AND 11 MAR 2023, AND COMPLETED THE ADJUVANT CHEMOTHERAPY OF 3 CYCLES.
     Route: 041
     Dates: start: 20230128, end: 20230311
  3. HERCEPTIN [Suspect]
     Active Substance: TRASTUZUMAB
     Indication: Invasive ductal breast carcinoma
     Dosage: 18 FEB 2023 AND 11 MAR 2023, AND COMPLETED THE ADJUVANT CHEMOTHERAPY OF 3 CYCLES.
     Route: 041
     Dates: start: 20230128, end: 20230311
  4. LOBAPLATIN [Suspect]
     Active Substance: LOBAPLATIN
     Indication: Invasive ductal breast carcinoma
     Dosage: 18 FEB 2023 AND 11 MAR 2023, AND COMPLETED THE ADJUVANT CHEMOTHERAPY OF 3 CYCLES.
     Route: 041
     Dates: start: 20230128, end: 20230311

REACTIONS (1)
  - Full blood count decreased [Recovering/Resolving]

NARRATIVE: CASE EVENT DATE: 20230322
